FAERS Safety Report 7733934-0 (Version None)
Quarter: 2011Q3

REPORT INFORMATION
  Report Type: 
  Country: None (occurrence: None)
  Receive Date: 20110906
  Receipt Date: 20110906
  Transmission Date: 20111222
  Serious: Yes (Hospitalization)
  Sender: FDA-Public Use
  Company Number: None

PATIENT
  Sex: Female
  Weight: 71.15 kg

DRUGS (3)
  1. PENTOSTATIN [Suspect]
     Dosage: 7.2 MG
  2. CYCLOPHOSPHAMIDE [Suspect]
     Dosage: 1080 MG
  3. RITUXIMAB [Suspect]

REACTIONS (4)
  - SPUTUM DISCOLOURED [None]
  - PRODUCTIVE COUGH [None]
  - INCREASED UPPER AIRWAY SECRETION [None]
  - FATIGUE [None]
